FAERS Safety Report 5346150-7 (Version None)
Quarter: 2007Q2

REPORT INFORMATION
  Report Type: 
  Country: None (occurrence: None)
  Receive Date: 20070605
  Receipt Date: 20070524
  Transmission Date: 20071010
  Serious: Yes (Other)
  Sender: FDA-Public Use
  Company Number: JP-JNJFOC-20070506656

PATIENT
  Age: 9 Year
  Sex: Female

DRUGS (7)
  1. LOPEMIN [Suspect]
     Indication: DRUG USE FOR UNKNOWN INDICATION
     Route: 048
  2. MUCODYNE [Concomitant]
     Route: 048
  3. DASEN [Concomitant]
     Route: 048
  4. ASVERIN [Concomitant]
     Route: 048
  5. MIYA BM [Concomitant]
     Route: 048
  6. GANATON [Concomitant]
     Route: 048
  7. CALONAL [Concomitant]
     Route: 065

REACTIONS (3)
  - HEPATITIS ACUTE [None]
  - JAUNDICE [None]
  - MALAISE [None]
